FAERS Safety Report 11413483 (Version 1)
Quarter: 2015Q3

REPORT INFORMATION
  Report Type: Spontaneous
  Country: US (occurrence: US)
  Receive Date: 20150821
  Receipt Date: 20150821
  Transmission Date: 20151125
  Serious: No
  Sender: FDA-Public Use
  Company Number: US-ELI_LILLY_AND_COMPANY-US201106003291

PATIENT
  Age: 63 Year
  Sex: Male

DRUGS (1)
  1. HUMULIN 70/30 [Suspect]
     Active Substance: INSULIN HUMAN
     Indication: TYPE 2 DIABETES MELLITUS
     Dosage: 60 U, BID
     Route: 065
     Dates: start: 20110101

REACTIONS (7)
  - Seizure like phenomena [Unknown]
  - Chills [Unknown]
  - Blood glucose decreased [Unknown]
  - Paraesthesia [Unknown]
  - Myalgia [Unknown]
  - Dysgeusia [Unknown]
  - Tremor [Unknown]

NARRATIVE: CASE EVENT DATE: 20110606
